FAERS Safety Report 7543997-3 (Version None)
Quarter: 2011Q2

REPORT INFORMATION
  Report Type: 
  Country: None (occurrence: None)
  Receive Date: 20110613
  Receipt Date: 20041028
  Transmission Date: 20111010
  Serious: Yes (Other)
  Sender: FDA-Public Use
  Company Number: PHHO2004JP14631

PATIENT
  Sex: Female

DRUGS (2)
  1. DIOVAN [Suspect]
     Indication: HYPERTENSION
     Dosage: 80 MG/DAY
     Route: 048
     Dates: start: 20030712, end: 20040128
  2. CALBLOCK [Concomitant]
     Indication: HYPERTENSION
     Dosage: 08 MG/DAY
     Route: 048
     Dates: start: 20030712

REACTIONS (1)
  - ANGINA PECTORIS [None]
